FAERS Safety Report 14778666 (Version 1)
Quarter: 2018Q2

REPORT INFORMATION
  Report Type: Spontaneous
  Country: IE (occurrence: IE)
  Receive Date: 20180419
  Receipt Date: 20180419
  Transmission Date: 20180711
  Serious: Yes (Other)
  Sender: FDA-Public Use
  Company Number: IE-CELGENEUS-IRL-20180401857

PATIENT
  Age: 41 Year
  Sex: Female

DRUGS (4)
  1. MELFEN [Concomitant]
     Indication: ANTIINFLAMMATORY THERAPY
  2. EVENING PRIMROSE OIL [Concomitant]
     Active Substance: EVENING PRIMROSE OIL\HERBALS
     Indication: PRODUCT USED FOR UNKNOWN INDICATION
     Dosage: 1 TABLET
     Route: 065
     Dates: start: 20180301, end: 20180330
  3. OTEZLA [Suspect]
     Active Substance: APREMILAST
     Indication: PSORIASIS
     Dosage: 60 MILLIGRAM
     Route: 048
     Dates: start: 20180125
  4. MELFEN [Concomitant]
     Indication: PAIN
     Route: 065
     Dates: start: 20180101

REACTIONS (2)
  - Hypertension [Unknown]
  - Vision blurred [Recovered/Resolved]

NARRATIVE: CASE EVENT DATE: 20180327
